FAERS Safety Report 13965421 (Version 4)
Quarter: 2018Q1

REPORT INFORMATION
  Report Type: Report from Study
  Country: BE (occurrence: BE)
  Receive Date: 20170913
  Receipt Date: 20180116
  Transmission Date: 20180508
  Serious: Yes (Hospitalization, Other)
  Sender: FDA-Public Use
  Company Number: BE-SA-2017SA166879

PATIENT
  Age: 0 Day
  Sex: Female
  Weight: 2.9 kg

DRUGS (2)
  1. LEMTRADA [Suspect]
     Active Substance: ALEMTUZUMAB
     Route: 064
  2. LEMTRADA [Suspect]
     Active Substance: ALEMTUZUMAB
     Route: 064
     Dates: end: 201606

REACTIONS (14)
  - Neck deformity [Unknown]
  - Scoliosis [Unknown]
  - Gastrooesophageal reflux disease [Unknown]
  - Hand deformity [Unknown]
  - Laryngeal stenosis [Unknown]
  - Cardiogenic shock [Unknown]
  - Stridor [Unknown]
  - Mobility decreased [Unknown]
  - Subarachnoid haemorrhage [Unknown]
  - Muscle contracture [Unknown]
  - Congenital multiplex arthrogryposis [Unknown]
  - Hypoxia [Unknown]
  - Foetal exposure timing unspecified [Unknown]
  - Foot deformity [Unknown]

NARRATIVE: CASE EVENT DATE: 2017
